FAERS Safety Report 7097637-0 (Version None)
Quarter: 2010Q4

REPORT INFORMATION
  Report Type: 
  Country: None (occurrence: None)
  Receive Date: 20101112
  Receipt Date: 20101103
  Transmission Date: 20110411
  Serious: Yes (Hospitalization)
  Sender: FDA-Public Use
  Company Number: US-BIOGENIDEC-2010BI011378

PATIENT
  Sex: Female

DRUGS (4)
  1. AVONEX [Suspect]
     Indication: MULTIPLE SCLEROSIS
     Route: 030
     Dates: start: 20010414
  2. AMPYRA [Concomitant]
  3. CELLCEPT [Concomitant]
  4. ANTIBIOTICS (NOS) [Concomitant]
     Indication: PROPHYLAXIS

REACTIONS (9)
  - BACK PAIN [None]
  - BACTERIAL DISEASE CARRIER [None]
  - BLADDER OPERATION [None]
  - CYSTITIS [None]
  - GAIT DISTURBANCE [None]
  - INJECTION SITE HAEMATOMA [None]
  - MOBILITY DECREASED [None]
  - NEPHROLITHIASIS [None]
  - SPONDYLITIS [None]
